FAERS Safety Report 23925052 (Version 1)
Quarter: 2024Q2

REPORT INFORMATION
  Report Type: Report from Study
  Country: US (occurrence: US)
  Receive Date: 20240531
  Receipt Date: 20240531
  Transmission Date: 20240716
  Serious: Yes (Hospitalization)
  Sender: FDA-Public Use
  Company Number: US-SERVIER-S24005978

PATIENT

DRUGS (3)
  1. CALASPARGASE PEGOL [Suspect]
     Active Substance: CALASPARGASE PEGOL
     Indication: T-cell type acute leukaemia
     Dosage: 2000 IU/M2, 3750 U, ONE DOSE ON DAY 5 OF EACH 21-DAY CYCLE
     Route: 042
     Dates: start: 20240510, end: 20240510
  2. METHOTREXATE [Suspect]
     Active Substance: METHOTREXATE
     Indication: T-cell type acute leukaemia
     Dosage: 1000 MG/M2, ONE DOSE ON DAY 5 OF EACH 21-DAY CYCLE
     Route: 042
     Dates: start: 20240506, end: 20240506
  3. CYTARABINE [Suspect]
     Active Substance: CYTARABINE
     Indication: T-cell type acute leukaemia
     Dosage: 3 G/M2, BID ON DAYS 2-3 OF EACH 21-DAY CYCLE
     Route: 042
     Dates: start: 20240507, end: 20240508

REACTIONS (1)
  - Febrile neutropenia [Unknown]

NARRATIVE: CASE EVENT DATE: 20240516
